FAERS Safety Report 21146885 (Version 1)
Quarter: 2022Q3

REPORT INFORMATION
  Report Type: Spontaneous
  Country: US (occurrence: None)
  Receive Date: 20220728
  Receipt Date: 20220728
  Transmission Date: 20221027
  Serious: Yes (Life-Threatening)
  Sender: FDA-Public Use
  Company Number: None

PATIENT
  Age: 27 Year
  Sex: Female
  Weight: 70.4 kg

DRUGS (1)
  1. BEBTELOVIMAB [Suspect]
     Active Substance: BEBTELOVIMAB
     Indication: COVID-19
     Dosage: OTHER FREQUENCY : ONCE;?
     Route: 042
     Dates: start: 20220725, end: 20220725

REACTIONS (6)
  - Throat tightness [None]
  - Pharyngeal swelling [None]
  - Nausea [None]
  - Paraesthesia [None]
  - Paraesthesia [None]
  - Hot flush [None]

NARRATIVE: CASE EVENT DATE: 20220725
